FAERS Safety Report 22056086 (Version 2)
Quarter: 2023Q1

REPORT INFORMATION
  Report Type: Report from Study
  Country: DK (occurrence: DK)
  Receive Date: 20230302
  Receipt Date: 20230315
  Transmission Date: 20230418
  Serious: Yes (Hospitalization, Other)
  Sender: FDA-Public Use
  Company Number: DK-KARYOPHARM-2023KPT000804

PATIENT
  Age: 74 Year
  Sex: Male

DRUGS (18)
  1. SELINEXOR [Suspect]
     Active Substance: SELINEXOR
     Indication: Product used for unknown indication
     Dosage: 20 MG, WEEKLY ON DAYS 1, 8, 15, AND 22 OF A 28-DAY CYCLE
     Route: 048
     Dates: start: 20220601, end: 20230202
  2. MAGNESIUM HYDROXIDE [Concomitant]
     Active Substance: MAGNESIUM HYDROXIDE
     Indication: Constipation
     Dosage: 2 TABLETS AT NIGHT
     Dates: start: 20221119
  3. FRAGMIN [Concomitant]
     Active Substance: DALTEPARIN SODIUM
     Indication: Anticoagulant therapy
     Dosage: UNK
     Dates: start: 20220708
  4. LERCASTAD [Concomitant]
     Indication: Blood pressure measurement
     Dosage: UNK
     Dates: start: 20220425
  5. ENALAPRIL MALEATE [Concomitant]
     Active Substance: ENALAPRIL MALEATE
     Indication: Blood pressure measurement
     Dosage: UNK
     Dates: start: 20220607
  6. MIKTOSAN [Concomitant]
     Indication: Dysuria
     Dosage: UNK
     Dates: start: 20220822
  7. ACYCLOVIR [Concomitant]
     Active Substance: ACYCLOVIR
     Indication: Infection
     Dosage: 1 AT 8 AM AND 1 AT 8 PM
     Dates: start: 20220601
  8. HALOPERIDOL [Concomitant]
     Active Substance: HALOPERIDOL
     Indication: Psychotic disorder
     Dosage: 0.5 TABLET AT NIGHT
     Dates: start: 20220605
  9. MIRTAZAPINE [Concomitant]
     Active Substance: MIRTAZAPINE
     Indication: Depression
     Dosage: 1 TABLET AT NIGHT
     Dates: start: 20220614
  10. SODIUM BICARBONATE [Concomitant]
     Active Substance: SODIUM BICARBONATE
     Indication: Hyponatraemia
     Dosage: 1 IN THE MORNING AND 1 AT NIGHT
  11. UNIKALK FORTE [Concomitant]
     Indication: Mineral supplementation
     Dosage: 1 TABLET IN MORNING AND 1 IN EVENING
     Dates: start: 20220823
  12. MOVICOL [Concomitant]
     Active Substance: POLYETHYLENE GLYCOL 3350\POTASSIUM CHLORIDE\SODIUM BICARBONATE\SODIUM CHLORIDE
     Indication: Constipation
     Dosage: 1 SACHET ONCE DAILY
     Dates: start: 20220926
  13. FILGRASTIM [Concomitant]
     Active Substance: FILGRASTIM
     Indication: Neutropenia
     Dosage: 30 MILLION UNITS/0.5ML; ONCE EVERY MONDAY IN THE MORNING
     Dates: start: 20230116
  14. FENTANYL [Concomitant]
     Active Substance: FENTANYL
     Indication: Pain
     Dosage: 1 PATCH EVERY 3 DAYS
     Dates: start: 20230106
  15. ONDANSETRON [Concomitant]
     Active Substance: ONDANSETRON
     Indication: Nausea
     Dosage: 4 TIMES EVERY WEEK (TWO TABLETS ON THURSDAY, 1 AT 8AM AND 1 AT 6PM AND TWO TABLETS ON FRIDAY, 1 AT 8
  16. APREPITANT [Concomitant]
     Active Substance: APREPITANT
     Indication: Nausea
     Dosage: 3 TIMES EVERY WEEK (ONE 125MG AT 8AM ON THURSDAY, ONE 80 MG AT 8AM ON FRIDAY, AND ONE 80 MG AT 8 AM
     Dates: start: 20230112
  17. TRAMADOL [Concomitant]
     Active Substance: TRAMADOL
     Indication: Pain
     Dosage: 1 TABLET MAX. 4 TIMES DAILY
     Dates: start: 20220728
  18. PINEX [PARACETAMOL] [Concomitant]
     Indication: Pain
     Dosage: 2 TABLETS MAX. 4 TIMES DAILY
     Dates: start: 20220726

REACTIONS (1)
  - Pneumonia [Recovered/Resolved]

NARRATIVE: CASE EVENT DATE: 20230205
